FAERS Safety Report 17873876 (Version 2)
Quarter: 2020Q2

REPORT INFORMATION
  Report Type: Spontaneous
  Country: CN (occurrence: CN)
  Receive Date: 20200609
  Receipt Date: 20200613
  Transmission Date: 20200714
  Serious: Yes (Hospitalization, Other)
  Sender: FDA-Public Use
  Company Number: CN-DRREDDYS-USA/CHN/20/0123792

PATIENT
  Age: 26 Year
  Sex: Male

DRUGS (2)
  1. BUSPIRONE HYDROCHLORIDE. [Suspect]
     Active Substance: BUSPIRONE HYDROCHLORIDE
     Indication: DEPRESSION
     Route: 048
  2. OLANZAPINE TABLETS 2.5 MG, 5 MG, 7.5 MG, 10 MG [Suspect]
     Active Substance: OLANZAPINE
     Indication: DEPRESSION
     Route: 048

REACTIONS (2)
  - Mydriasis [Recovered/Resolved]
  - Lens dislocation [Recovered/Resolved]
